FAERS Safety Report 6815373-X (Version None)
Quarter: 2010Q3

REPORT INFORMATION
  Report Type: 
  Country: None (occurrence: None)
  Receive Date: 20100702
  Receipt Date: 20100622
  Transmission Date: 20110219
  Serious: Yes (Other)
  Sender: FDA-Public Use
  Company Number: US-ABBOTT-10P-163-0653004-00

PATIENT
  Sex: Female
  Weight: 81.72 kg

DRUGS (2)
  1. LUPRON DEPOT [Suspect]
     Indication: ENDOMETRIOSIS
     Dates: start: 20091101, end: 20100101
  2. YAZ [Concomitant]
     Indication: ENDOMETRIOSIS

REACTIONS (2)
  - DRUG INEFFECTIVE [None]
  - PELVIC PAIN [None]
